FAERS Safety Report 5242771-0 (Version None)
Quarter: 2007Q1

REPORT INFORMATION
  Report Type: 
  Country: None (occurrence: None)
  Receive Date: 20070214
  Receipt Date: 20070131
  Transmission Date: 20070707
  Serious: Yes (Other)
  Sender: FDA-Public Use
  Company Number: 2006-02541

PATIENT
  Age: 74 Year
  Sex: Male
  Weight: 79.1 kg

DRUGS (3)
  1. VELCADE [Suspect]
     Indication: MULTIPLE MYELOMA
     Dosage: 2.40 MG, INTRAVENOUS
     Route: 042
     Dates: start: 20060718, end: 20060908
  2. DEXAMETHASONE [Concomitant]
  3. CLODRONATE DISODIUM (CLODRONATE DISODIUM) [Concomitant]

REACTIONS (2)
  - DRUG INEFFECTIVE [None]
  - INFLUENZA LIKE ILLNESS [None]
